FAERS Safety Report 11185592 (Version 1)
Quarter: 2015Q2

REPORT INFORMATION
  Report Type: Spontaneous
  Country: US (occurrence: US)
  Receive Date: 20150612
  Receipt Date: 20150612
  Transmission Date: 20150821
  Serious: No
  Sender: FDA-Public Use
  Company Number: US-BAUSCH-BL-2014-004038

PATIENT
  Sex: Male
  Weight: 70.37 kg

DRUGS (4)
  1. APLENZIN [Suspect]
     Active Substance: BUPROPION HYDROBROMIDE
     Indication: DEPRESSION
     Dates: start: 2012
  2. CASODEX [Concomitant]
     Active Substance: BICALUTAMIDE
     Indication: PROSTATE CANCER
     Route: 048
  3. INDERAL [Concomitant]
     Active Substance: PROPRANOLOL HYDROCHLORIDE
     Indication: EXTRASYSTOLES
     Route: 048
  4. RAPAFLO [Concomitant]
     Active Substance: SILODOSIN
     Indication: DYSURIA
     Route: 048

REACTIONS (2)
  - Product quality issue [Unknown]
  - Feeling abnormal [Recovered/Resolved]
